FAERS Safety Report 13336414 (Version 2)
Quarter: 2017Q2

REPORT INFORMATION
  Report Type: Spontaneous
  Country: US (occurrence: US)
  Receive Date: 20170314
  Receipt Date: 20170426
  Transmission Date: 20170830
  Serious: No
  Sender: FDA-Public Use
  Company Number: US-JAZZ-2016-US-014961

PATIENT
  Age: 61 Year
  Sex: Male

DRUGS (38)
  1. HYDROMORPHONE HCL [Concomitant]
     Active Substance: HYDROMORPHONE HYDROCHLORIDE
  2. CITALOPRAM [Concomitant]
     Active Substance: CITALOPRAM HYDROBROMIDE
  3. MELATONIN [Concomitant]
     Active Substance: MELATONIN
  4. TESTOSTERONE CYPIONATE. [Concomitant]
     Active Substance: TESTOSTERONE CYPIONATE
  5. VITAMIN D3 [Concomitant]
     Active Substance: CHOLECALCIFEROL
  6. GLIPIZIDE. [Concomitant]
     Active Substance: GLIPIZIDE
  7. AMITRIPTYLINE [Concomitant]
     Active Substance: AMITRIPTYLINE
  8. XYREM [Suspect]
     Active Substance: SODIUM OXYBATE
     Dosage: 4.5 G, BID
     Route: 048
     Dates: start: 201411
  9. MILK THISTLE [Concomitant]
     Active Substance: MILK THISTLE
  10. PSYLLIUM [Concomitant]
     Active Substance: PLANTAGO SEED
  11. SELENIUM [Concomitant]
     Active Substance: SELENIUM
  12. XYREM [Suspect]
     Active Substance: SODIUM OXYBATE
     Indication: SLEEP DISORDER
     Dosage: 2.25 G, BID
     Route: 048
     Dates: start: 201411, end: 201411
  13. XYREM [Suspect]
     Active Substance: SODIUM OXYBATE
     Dosage: 9 G, FIRST DOSE
     Route: 048
     Dates: start: 201610
  14. OMEPRAZOLE. [Concomitant]
     Active Substance: OMEPRAZOLE
  15. BYETTA [Concomitant]
     Active Substance: EXENATIDE
  16. ALPHA LIPOIC ACID [Concomitant]
     Active Substance: .ALPHA.-LIPOIC ACID
  17. L-THREONINE [Concomitant]
  18. MI-ACID [Concomitant]
  19. OMEGA-3 ACIDS [Concomitant]
     Active Substance: OMEGA-3 FATTY ACIDS
  20. CONCERTA [Concomitant]
     Active Substance: METHYLPHENIDATE HYDROCHLORIDE
  21. LANTUS [Concomitant]
     Active Substance: INSULIN GLARGINE
  22. PROVIGIL [Concomitant]
     Active Substance: MODAFINIL
  23. ECHINACEA [Concomitant]
     Active Substance: ECHINACEA, UNSPECIFIED
  24. XYREM [Suspect]
     Active Substance: SODIUM OXYBATE
     Dosage: 9 G, QD AT BEDTIME
     Route: 048
  25. HYDROCHLOROTHIAZIDE. [Concomitant]
     Active Substance: HYDROCHLOROTHIAZIDE
  26. MULTIVITAMINS PLUS IRON [Concomitant]
  27. TRAMADOL HCL [Concomitant]
     Active Substance: TRAMADOL HYDROCHLORIDE
  28. SODIUM BICARBONATE. [Concomitant]
     Active Substance: SODIUM BICARBONATE
  29. VICODIN ES [Concomitant]
     Active Substance: ACETAMINOPHEN\HYDROCODONE BITARTRATE
  30. COENZYME Q10 [Concomitant]
     Active Substance: UBIDECARENONE
  31. NOVOLOG [Concomitant]
     Active Substance: INSULIN ASPART
  32. XYREM [Suspect]
     Active Substance: SODIUM OXYBATE
     Dosage: 4.5 G, SECOND DOSE
     Route: 048
     Dates: start: 201610
  33. IBUPROFEN. [Concomitant]
     Active Substance: IBUPROFEN
  34. ALEVE [Concomitant]
     Active Substance: NAPROXEN SODIUM
  35. ASPIRIN. [Concomitant]
     Active Substance: ASPIRIN
  36. TIZANIDINE. [Concomitant]
     Active Substance: TIZANIDINE
  37. DOXYCYCLINE MONOHYDRATE [Concomitant]
     Active Substance: DOXYCYCLINE
  38. LIDOCAINE. [Concomitant]
     Active Substance: LIDOCAINE

REACTIONS (7)
  - Sedation [Unknown]
  - Prescribed overdose [Unknown]
  - Unevaluable event [Unknown]
  - Insomnia [Not Recovered/Not Resolved]
  - Incorrect dose administered [Unknown]
  - Emotional disorder [Unknown]
  - Loss of personal independence in daily activities [Unknown]

NARRATIVE: CASE EVENT DATE: 201610
